FAERS Safety Report 7910554-6 (Version None)
Quarter: 2011Q4

REPORT INFORMATION
  Report Type: 
  Country: None (occurrence: None)
  Receive Date: 20111111
  Receipt Date: 20111031
  Transmission Date: 20120403
  Serious: Yes (Disabling, Other)
  Sender: FDA-Public Use
  Company Number: PHEH2011US07047

PATIENT
  Sex: Female
  Weight: 69 kg

DRUGS (11)
  1. HYGROTON [Concomitant]
     Dosage: 1 DF, QD
     Route: 048
  2. FENOFIBRATE [Concomitant]
     Indication: HYPERLIPIDAEMIA
     Dosage: 1 DF, QD
     Route: 048
  3. JANUMET [Concomitant]
     Indication: DIABETES MELLITUS
     Dosage: 50-500 MG, BID
  4. GILENYA [Suspect]
     Dosage: 0.5 MG, QOD
     Route: 048
     Dates: end: 20111001
  5. ZOCOR [Concomitant]
     Indication: HYPERLIPIDAEMIA
     Dosage: 1 DF, QD
     Route: 048
  6. ZESTRIL [Concomitant]
     Indication: HYPERTENSION
     Dosage: 1 DF, QD
     Route: 048
  7. MIRAPEX [Suspect]
     Dosage: 0.25 AT 4PM AND 0.5 AT 8PM
     Route: 048
  8. GILENYA [Suspect]
     Indication: RELAPSING-REMITTING MULTIPLE SCLEROSIS
     Dosage: 0.5 MG, QD
     Route: 048
     Dates: start: 20110901
  9. ASPIRIN [Concomitant]
     Dosage: 1 DF, QD
     Route: 048
  10. VITAMIN D [Concomitant]
     Indication: VITAMIN D DEFICIENCY
     Dosage: 1 DF, QW
     Route: 048
  11. AMARYL [Concomitant]
     Indication: DIABETES MELLITUS
     Dosage: 2 DF, QD
     Route: 048

REACTIONS (6)
  - NAUSEA [None]
  - INFLUENZA LIKE ILLNESS [None]
  - DIARRHOEA [None]
  - SOMNOLENCE [None]
  - HEADACHE [None]
  - INCORRECT DOSE ADMINISTERED [None]
